FAERS Safety Report 12644003 (Version 2)
Quarter: 2019Q1

REPORT INFORMATION
  Report Type: Report from Study
  Country: US (occurrence: US)
  Receive Date: 20160811
  Receipt Date: 20190102
  Transmission Date: 20190417
  Serious: Yes (Other)
  Sender: FDA-Public Use
  Company Number: US-SA-2016SA147169

PATIENT
  Age: 72 Year
  Sex: Female

DRUGS (12)
  1. HYDRALAZINE [Concomitant]
     Active Substance: HYDRALAZINE HYDROCHLORIDE
     Dosage: UNK
  2. NIFEDICAL XL [Concomitant]
     Active Substance: NIFEDIPINE
     Dosage: UNK
  3. BYSTOLIC [Concomitant]
     Active Substance: NEBIVOLOL HYDROCHLORIDE
     Dosage: UNK
  4. TRAMADOL HYDROCHLORIDE. [Concomitant]
     Active Substance: TRAMADOL HYDROCHLORIDE
     Dosage: UNK
  5. ALIROCUMAB [Suspect]
     Active Substance: ALIROCUMAB
     Indication: TYPE IIA HYPERLIPIDAEMIA
     Dosage: 75 MG, QOW
     Route: 058
     Dates: start: 20160223
  6. TORSEMIDE. [Concomitant]
     Active Substance: TORSEMIDE
     Dosage: UNK
  7. DULOXETINE. [Concomitant]
     Active Substance: DULOXETINE
     Dosage: UNK
  8. LEVEMIR [Concomitant]
     Active Substance: INSULIN DETEMIR
     Dosage: UNK
  9. ZETIA [Concomitant]
     Active Substance: EZETIMIBE
     Dosage: UNK
  10. LATANOPROST. [Concomitant]
     Active Substance: LATANOPROST
     Dosage: SOL
  11. APIDRA [Concomitant]
     Active Substance: INSULIN GLULISINE
     Dosage: UNK
  12. CLONIDINE. [Concomitant]
     Active Substance: CLONIDINE
     Dosage: UNK

REACTIONS (4)
  - Rhinitis [Not Recovered/Not Resolved]
  - Pulmonary congestion [Not Recovered/Not Resolved]
  - Pruritus [Unknown]
  - Rash [Unknown]

NARRATIVE: CASE EVENT DATE: 2016
